FAERS Safety Report 4518490-2 (Version None)
Quarter: 2004Q4

REPORT INFORMATION
  Report Type: 
  Country: None (occurrence: None)
  Receive Date: 20041203
  Receipt Date: 20030930
  Transmission Date: 20050328
  Serious: Yes (Death, Hospitalization)
  Sender: FDA-Public Use
  Company Number: US-MERCK-0309USA03341

PATIENT
  Age: 32 Year
  Sex: Female
  Weight: 100 kg

DRUGS (7)
  1. VIOXX [Suspect]
     Indication: PAIN IN EXTREMITY
     Route: 048
     Dates: start: 20000831, end: 20000903
  2. VIOXX [Suspect]
     Route: 048
     Dates: start: 20000904, end: 20000901
  3. VIOXX [Suspect]
     Indication: PLANTAR FASCIITIS
     Route: 048
     Dates: start: 20000831, end: 20000903
  4. VIOXX [Suspect]
     Route: 048
     Dates: start: 20000904, end: 20000901
  5. ORTHO CYCLEN-28 [Concomitant]
     Route: 065
  6. IRON (UNSPECIFIED) [Concomitant]
     Route: 065
  7. DARVOCET-N 100 [Concomitant]
     Indication: PAIN
     Route: 065

REACTIONS (21)
  - BLOOD ALBUMIN DECREASED [None]
  - BLOOD ALKALINE PHOSPHATASE INCREASED [None]
  - BLOOD LACTATE DEHYDROGENASE INCREASED [None]
  - BLOOD PH INCREASED [None]
  - COMA [None]
  - CONVULSION [None]
  - DEEP VEIN THROMBOSIS [None]
  - DIZZINESS [None]
  - FALL [None]
  - FATIGUE [None]
  - GASTROINTESTINAL PAIN [None]
  - HEADACHE [None]
  - INJURY [None]
  - MYDRIASIS [None]
  - NAUSEA [None]
  - PALLOR [None]
  - PARAESTHESIA [None]
  - PULMONARY EMBOLISM [None]
  - SINUS TACHYCARDIA [None]
  - THERAPY NON-RESPONDER [None]
  - VOMITING [None]
